FAERS Safety Report 9901842 (Version 1)
Quarter: 2014Q1

REPORT INFORMATION
  Report Type: Spontaneous
  Country: US (occurrence: US)
  Receive Date: 20140217
  Receipt Date: 20140217
  Transmission Date: 20141002
  Serious: Yes (Other)
  Sender: FDA-Public Use
  Company Number: US-GLAXOSMITHKLINE-A1060487A

PATIENT
  Age: 83 Year
  Sex: Female

DRUGS (6)
  1. ADVAIR HFA [Suspect]
     Indication: ASTHMA
     Dosage: 1PUFF PER DAY
     Route: 055
     Dates: start: 1999, end: 20140121
  2. VENTOLIN HFA [Suspect]
     Indication: ASTHMA
     Dosage: 90MCG UNKNOWN
     Route: 055
     Dates: start: 201310, end: 201310
  3. TRAMADOL [Concomitant]
  4. LOSARTAN [Concomitant]
  5. UNSPECIFIED MEDICATION [Concomitant]
     Indication: GASTROOESOPHAGEAL REFLUX DISEASE
  6. IMIPRAMINE [Concomitant]

REACTIONS (7)
  - Angina pectoris [Recovered/Resolved]
  - Blood pressure increased [Recovered/Resolved]
  - Heart rate irregular [Recovered/Resolved]
  - Nasal congestion [Recovered/Resolved]
  - Cataract [Recovered/Resolved]
  - Condition aggravated [Recovered/Resolved]
  - Arthralgia [Recovered/Resolved]
